FAERS Safety Report 6460662-4 (Version None)
Quarter: 2009Q4

REPORT INFORMATION
  Report Type: 
  Country: None (occurrence: None)
  Receive Date: 20091130
  Receipt Date: 20091119
  Transmission Date: 20100525
  Serious: Yes (Other)
  Sender: FDA-Public Use
  Company Number: JP-SANOFI-AVENTIS-2009SA002775

PATIENT
  Age: 87 Year
  Sex: Female

DRUGS (3)
  1. ENOXAPARIN SODIUM [Suspect]
     Dosage: PLANNED TO BE CONTINUED TILL 27-NOV-09
     Route: 058
     Dates: start: 20091114
  2. BONALON [Concomitant]
     Indication: OSTEOPOROSIS
  3. ANALGESICS [Concomitant]
     Indication: PAIN

REACTIONS (1)
  - CEREBRAL INFARCTION [None]
